FAERS Safety Report 6882441-6 (Version None)
Quarter: 2010Q3

REPORT INFORMATION
  Report Type: 
  Country: None (occurrence: None)
  Receive Date: 20100727
  Receipt Date: 20100714
  Transmission Date: 20110219
  Serious: Yes (Other)
  Sender: FDA-Public Use
  Company Number: US-PFIZER INC-2010088750

PATIENT
  Sex: Male
  Weight: 59.864 kg

DRUGS (2)
  1. SUTENT [Suspect]
     Indication: METASTASES TO LUNG
     Dosage: UNK
     Route: 048
     Dates: start: 20100201, end: 20100601
  2. NEXIUM [Concomitant]
     Dosage: 40 MG, UNK

REACTIONS (1)
  - SKIN ULCER [None]
